FAERS Safety Report 24732678 (Version 5)
Quarter: 2025Q3

REPORT INFORMATION
  Report Type: Report from Study
  Country: EG (occurrence: EG)
  Receive Date: 20241213
  Receipt Date: 20250814
  Transmission Date: 20251020
  Serious: Yes (Hospitalization)
  Sender: BIOGEN
  Company Number: EG-BIOGEN-2024BI01293459

PATIENT
  Age: 19 Year
  Sex: Female
  Weight: 84 kg

DRUGS (4)
  1. TYSABRI [Suspect]
     Active Substance: NATALIZUMAB
     Indication: Multiple sclerosis
     Dosage: 300MG/15ML
     Route: 050
     Dates: start: 20241126
  2. SOLU-MEDROL [Suspect]
     Active Substance: METHYLPREDNISOLONE SODIUM SUCCINATE
     Indication: Multiple sclerosis relapse
     Route: 050
  3. Chromax [Concomitant]
     Indication: Medical diet
     Route: 050
  4. PHENIRAMINE [Concomitant]
     Active Substance: PHENIRAMINE
     Indication: Product used for unknown indication
     Route: 050

REACTIONS (13)
  - Multiple sclerosis relapse [Not Recovered/Not Resolved]
  - Gait inability [Unknown]
  - Tremor [Unknown]
  - Vomiting [Recovered/Resolved]
  - Fatigue [Recovered/Resolved]
  - Bone pain [Unknown]
  - Blood pressure fluctuation [Not Recovered/Not Resolved]
  - Renal function test abnormal [Unknown]
  - Electric shock sensation [Unknown]
  - Stress [Unknown]
  - Tachycardia [Recovered/Resolved]
  - Migraine [Recovered/Resolved]
  - Dizziness [Unknown]

NARRATIVE: CASE EVENT DATE: 20241101
